FAERS Safety Report 24170695 (Version 1)
Quarter: 2024Q3

REPORT INFORMATION
  Report Type: Spontaneous
  Country: US (occurrence: None)
  Receive Date: 20240803
  Receipt Date: 20240803
  Transmission Date: 20241016
  Serious: Yes (Hospitalization)
  Sender: Public
  Company Number: None

PATIENT
  Sex: Female
  Weight: 67.7 kg

DRUGS (2)
  1. CARBOPLATIN [Suspect]
     Active Substance: CARBOPLATIN
  2. GEMCITABINE HYDROCHLORIDE [Concomitant]

REACTIONS (10)
  - Alanine aminotransferase increased [None]
  - Aspartate aminotransferase increased [None]
  - Dehydration [None]
  - Triple negative breast cancer [None]
  - Malignant neoplasm progression [None]
  - Metastases to lung [None]
  - Respiratory failure [None]
  - Pulmonary embolism [None]
  - Metastases to liver [None]
  - Tumour rupture [None]

NARRATIVE: CASE EVENT DATE: 20230608
